FAERS Safety Report 6161101-3 (Version None)
Quarter: 2009Q2

REPORT INFORMATION
  Report Type: 
  Country: None (occurrence: None)
  Receive Date: 20090421
  Receipt Date: 20090413
  Transmission Date: 20091009
  Serious: Yes (Hospitalization, Other)
  Sender: FDA-Public Use
  Company Number: US-ELI_LILLY_AND_COMPANY-US200812002027

PATIENT
  Sex: Female
  Weight: 105.22 kg

DRUGS (3)
  1. BYETTA [Suspect]
     Indication: TYPE 2 DIABETES MELLITUS
     Dosage: 5 UG, DAILY (1/D)
     Dates: start: 20081204, end: 20081207
  2. METFORMIN HCL [Concomitant]
     Indication: TYPE 2 DIABETES MELLITUS
  3. GLYBURIDE [Concomitant]
     Indication: TYPE 2 DIABETES MELLITUS

REACTIONS (5)
  - ASTHENIA [None]
  - DIARRHOEA [None]
  - FATIGUE [None]
  - PNEUMONIA [None]
  - SEPSIS [None]
